FAERS Safety Report 17813919 (Version 4)
Quarter: 2021Q1

REPORT INFORMATION
  Report Type: Report from Study
  Country: FR (occurrence: FR)
  Receive Date: 20200521
  Receipt Date: 20210112
  Transmission Date: 20210419
  Serious: Yes (Other)
  Sender: FDA-Public Use
  Company Number: FR-CELGENEUS-FRA-20200505487

PATIENT
  Age: 77 Year
  Sex: Female
  Weight: 38 kg

DRUGS (11)
  1. FEDRATINIB [Suspect]
     Active Substance: FEDRATINIB
     Indication: MYELOFIBROSIS
     Dosage: 400 MG X 1 X 1 DAYS
     Route: 048
     Dates: start: 20200113, end: 20200209
  2. FEDRATINIB [Suspect]
     Active Substance: FEDRATINIB
     Dosage: 400 MG X 1 X 1 DAYS
     Route: 048
     Dates: start: 20200210, end: 20200308
  3. VITAMIN B9 [Concomitant]
     Indication: SUPPLEMENTATION THERAPY
     Dosage: 5 MG X 1 X 1 MONTHS
     Route: 048
     Dates: start: 20200518
  4. FEDRATINIB [Suspect]
     Active Substance: FEDRATINIB
     Dosage: 400 MG X 1 X 1 DAYS
     Route: 048
     Dates: start: 20200309, end: 20200405
  5. FEDRATINIB [Suspect]
     Active Substance: FEDRATINIB
     Dosage: 300 MG X 1 X 1 DAYS
     Route: 048
     Dates: start: 20200518, end: 20200601
  6. FEDRATINIB [Suspect]
     Active Substance: FEDRATINIB
     Dosage: 400 MG X 1 X 1 DAYS
     Route: 048
     Dates: start: 20200504, end: 20200517
  7. FEDRATINIB [Suspect]
     Active Substance: FEDRATINIB
     Dosage: 300 MG X 1 X 1 DAYS
     Route: 048
     Dates: start: 20200629, end: 20200707
  8. FEDRATINIB [Suspect]
     Active Substance: FEDRATINIB
     Dosage: 300 MG X 1 X 1 DAYS
     Route: 048
     Dates: start: 20200602, end: 20200628
  9. EXJADE [Concomitant]
     Active Substance: DEFERASIROX
     Indication: PROPHYLAXIS
     Dosage: 360 MG X 1 X 1 MONTHS
     Route: 048
  10. PARACETAMOL [Concomitant]
     Active Substance: ACETAMINOPHEN
     Indication: BONE PAIN
     Dosage: PRN G X PRN
     Route: 048
  11. FEDRATINIB [Suspect]
     Active Substance: FEDRATINIB
     Dosage: 400 MG X 1 X 1 DAYS
     Route: 048
     Dates: start: 20200406, end: 20200503

REACTIONS (1)
  - Vitamin B1 decreased [Recovered/Resolved]

NARRATIVE: CASE EVENT DATE: 20200506
